FAERS Safety Report 4963049-6 (Version None)
Quarter: 2006Q2

REPORT INFORMATION
  Report Type: 
  Country: None (occurrence: None)
  Receive Date: 20060405
  Receipt Date: 20060323
  Transmission Date: 20061013
  Serious: Yes (Hospitalization, Other)
  Sender: FDA-Public Use
  Company Number: BE-JNJFOC-20060200961

PATIENT
  Sex: Female

DRUGS (7)
  1. TOPAMAX [Suspect]
     Indication: DRUG USE FOR UNKNOWN INDICATION
     Route: 048
  2. LAMICTAL [Concomitant]
     Route: 048
  3. ALDACTAZINE [Concomitant]
     Route: 048
  4. ALDACTAZINE [Concomitant]
     Route: 048
  5. ZOCOR [Concomitant]
     Route: 048
  6. GARDENAL [Concomitant]
     Route: 048
  7. HALDOL [Concomitant]
     Route: 048

REACTIONS (3)
  - DEHYDRATION [None]
  - NEPHROLITHIASIS [None]
  - PYELONEPHRITIS ACUTE [None]
